FAERS Safety Report 7061656-0 (Version None)
Quarter: 2010Q4

REPORT INFORMATION
  Report Type: 
  Country: None (occurrence: None)
  Receive Date: 20101026
  Receipt Date: 20101015
  Transmission Date: 20110411
  Serious: Yes (Life-Threatening, Hospitalization, Other)
  Sender: FDA-Public Use
  Company Number: CA-JNJFOC-20101004535

PATIENT
  Sex: Male
  Weight: 142.43 kg

DRUGS (9)
  1. REMICADE [Suspect]
     Indication: PSORIASIS
     Route: 042
  2. METHOTREXATE [Suspect]
     Indication: PSORIASIS
  3. ASPIRIN [Concomitant]
  4. ALLOPURINOL [Concomitant]
  5. VITAMIN B-12 [Concomitant]
  6. OXAZEPAM [Concomitant]
  7. CRESTOR [Concomitant]
  8. REMERON [Concomitant]
  9. ZOPICLONE [Concomitant]

REACTIONS (1)
  - PNEUMONIA LEGIONELLA [None]
